FAERS Safety Report 9346403 (Version 7)
Quarter: 2013Q4

REPORT INFORMATION
  Report Type: Report from Study
  Country: JP (occurrence: JP)
  Receive Date: 20130613
  Receipt Date: 20131220
  Transmission Date: 20140711
  Serious: Yes (Hospitalization, Other)
  Sender: FDA-Public Use
  Company Number: JP-PFIZER INC-2013168800

PATIENT
  Age: 41 Year
  Sex: Female
  Weight: 56.3 kg

DRUGS (13)
  1. TOFACITINIB CITRATE [Suspect]
     Indication: RHEUMATOID ARTHRITIS
     Dosage: 5 MG, 2X/DAY
     Route: 048
     Dates: start: 20080805, end: 20130718
  2. METHOTREXATE [Concomitant]
     Indication: RHEUMATOID ARTHRITIS
     Dosage: 7.5 MG, WEEKLY
     Route: 048
     Dates: start: 20090902
  3. FOLIAMIN [Concomitant]
     Indication: PROPHYLAXIS
     Dosage: 5 MG, WEEKLY
     Route: 048
     Dates: start: 20070703
  4. PREDNISOLONE [Concomitant]
     Indication: RHEUMATOID ARTHRITIS
     Dosage: TWICE DAILY
     Route: 048
     Dates: start: 20090706
  5. VOLTAREN [Concomitant]
     Indication: RHEUMATOID ARTHRITIS
     Dosage: 37.5 MG, 1X/DAY
     Route: 048
     Dates: start: 20110117
  6. TALION [Concomitant]
     Indication: RHINITIS ALLERGIC
     Dosage: 10 MG, 2X/DAY
     Route: 048
     Dates: start: 20121214
  7. TAKEPRON [Concomitant]
     Indication: GASTROOESOPHAGEAL REFLUX PROPHYLAXIS
     Dosage: 15 MG, 1X/DAY
     Route: 048
     Dates: start: 20100215
  8. SELBEX [Concomitant]
     Indication: GASTRITIS PROPHYLAXIS
     Dosage: TWICE DAILY
     Route: 048
     Dates: start: 20070403
  9. BIO THREE [Concomitant]
     Indication: CHANGE OF BOWEL HABIT
     Dosage: THRICE DAILY
     Route: 048
     Dates: start: 20130401
  10. LAC B [Concomitant]
     Dosage: 1 G, AS NEEDED
     Route: 048
     Dates: start: 20110801
  11. BUFFERIN [Concomitant]
     Indication: DYSMENORRHOEA
     Dosage: AS NEEDED
     Route: 048
     Dates: start: 20120507
  12. SAHNE [Concomitant]
     Indication: DRY SKIN
     Dosage: AS NEEDED
     Route: 062
     Dates: start: 20100125
  13. HYALEIN [Concomitant]
     Indication: DRY EYE
     Dosage: AS NEEDED
     Route: 047
     Dates: start: 20110214

REACTIONS (1)
  - Colon adenoma [Recovering/Resolving]
